FAERS Safety Report 6394282-7 (Version None)
Quarter: 2009Q4

REPORT INFORMATION
  Report Type: 
  Country: None (occurrence: None)
  Receive Date: 20091008
  Receipt Date: 20091002
  Transmission Date: 20100525
  Serious: No
  Sender: FDA-Public Use
  Company Number: US-B.I. PHARMACEUTICALS,INC./RIDGEFIELD-2009-BP-11571BP

PATIENT
  Age: 42 Year
  Sex: Male

DRUGS (2)
  1. VIRAMUNE [Suspect]
     Indication: HIV INFECTION
  2. EPZICOM [Suspect]
     Indication: HIV INFECTION

REACTIONS (2)
  - BURNING SENSATION [None]
  - HYPOAESTHESIA [None]
